FAERS Safety Report 10185796 (Version 2)
Quarter: 2014Q2

REPORT INFORMATION
  Report Type: Spontaneous
  Country: DE (occurrence: DE)
  Receive Date: 20140521
  Receipt Date: 20140521
  Transmission Date: 20141212
  Serious: Yes (Other)
  Sender: FDA-Public Use
  Company Number: DE-JNJFOC-20140407511

PATIENT
  Age: 39 Year
  Sex: Male

DRUGS (2)
  1. REMICADE [Suspect]
     Indication: CROHN^S DISEASE
     Dosage: 400 MG
     Route: 042
     Dates: start: 201207, end: 201402
  2. PREDNISOLONE [Concomitant]
     Indication: CROHN^S DISEASE
     Dosage: DATES OF THERAPY: 2012/2013/2014 INTERMITTENT
     Route: 065

REACTIONS (2)
  - Alopecia [Not Recovered/Not Resolved]
  - Arthralgia [Recovering/Resolving]
